FAERS Safety Report 9084930 (Version 1)
Quarter: 2013Q1

REPORT INFORMATION
  Report Type: Spontaneous
  Country: US (occurrence: US)
  Receive Date: 20130130
  Receipt Date: 20130130
  Transmission Date: 20140127
  Serious: No
  Sender: FDA-Public Use
  Company Number: US-009507513-1301USA013148

PATIENT
  Sex: Female
  Weight: 131.52 kg

DRUGS (4)
  1. IMPLANON [Suspect]
     Indication: CONTRACEPTION
     Dosage: UNK
     Dates: start: 20110516
  2. WELLBUTRIN [Concomitant]
  3. BUSPAR [Concomitant]
  4. LEVOTHYROXINE SODIUM [Concomitant]

REACTIONS (3)
  - Implant site pruritus [Not Recovered/Not Resolved]
  - Weight loss poor [Not Recovered/Not Resolved]
  - Device breakage [Unknown]
